FAERS Safety Report 7550653-4 (Version None)
Quarter: 2011Q2

REPORT INFORMATION
  Report Type: 
  Country: None (occurrence: None)
  Receive Date: 20110616
  Receipt Date: 20110608
  Transmission Date: 20111010
  Serious: Yes (Death, Hospitalization)
  Sender: FDA-Public Use
  Company Number: US-CELGENEUS-163-21880-11061614

PATIENT
  Age: 64 Year
  Sex: Male

DRUGS (5)
  1. CITALOPRAM HYDROBROMIDE [Concomitant]
     Route: 065
  2. MEGESTROL ACETATE [Concomitant]
     Route: 065
  3. REVLIMID [Suspect]
     Indication: MULTIPLE MYELOMA
     Dosage: 15 MILLIGRAM
     Route: 048
     Dates: start: 20100801, end: 20110101
  4. SIMVASTATIN [Concomitant]
     Route: 065
  5. BICALUTAMIDE [Concomitant]
     Route: 065

REACTIONS (6)
  - SUBDURAL HAEMORRHAGE [None]
  - PULMONARY EMBOLISM [None]
  - DEATH [None]
  - NO THERAPEUTIC RESPONSE [None]
  - NEUTROPHIL COUNT DECREASED [None]
  - EPISTAXIS [None]
